FAERS Safety Report 4688924-1 (Version None)
Quarter: 2005Q2

REPORT INFORMATION
  Report Type: 
  Country: None (occurrence: None)
  Receive Date: 20050613
  Receipt Date: 20040804
  Transmission Date: 20051028
  Serious: Yes (Hospitalization, Disabling)
  Sender: FDA-Public Use
  Company Number: US-ROCHE-376772

PATIENT
  Age: 30 Year
  Sex: Male

DRUGS (1)
  1. ACCUTANE [Suspect]
     Indication: ACNE
     Route: 065
     Dates: start: 19880815, end: 19890215

REACTIONS (67)
  - ABDOMINAL PAIN [None]
  - ANXIETY [None]
  - ASTHENIA [None]
  - BACK PAIN [None]
  - BLISTER [None]
  - BRADYCARDIA [None]
  - CERVICAL SPINAL STENOSIS [None]
  - CERVICOBRACHIAL SYNDROME [None]
  - CHEST DISCOMFORT [None]
  - COLECTOMY [None]
  - COLITIS [None]
  - COLITIS ULCERATIVE [None]
  - CONSTIPATION [None]
  - DEPRESSED MOOD [None]
  - DEPRESSION [None]
  - DERMATITIS [None]
  - DIARRHOEA [None]
  - DIZZINESS [None]
  - DRUG HYPERSENSITIVITY [None]
  - DRY SKIN [None]
  - DYSPNOEA [None]
  - DYSURIA [None]
  - EPIDERMAL NAEVUS [None]
  - EPISTAXIS [None]
  - ERUCTATION [None]
  - ERYTHEMA [None]
  - FATIGUE [None]
  - GASTROINTESTINAL DISORDER [None]
  - GASTROINTESTINAL HAEMORRHAGE [None]
  - GLOSSODYNIA [None]
  - HAEMORRHAGE [None]
  - HAEMORRHOIDS [None]
  - HYPERHIDROSIS [None]
  - HYPERKERATOSIS [None]
  - HYPOGLYCAEMIA [None]
  - INFLAMMATORY BOWEL DISEASE [None]
  - INGUINAL HERNIA [None]
  - INSOMNIA [None]
  - INTERVERTEBRAL DISC PROTRUSION [None]
  - INTESTINAL HAEMORRHAGE [None]
  - IRRITABLE BOWEL SYNDROME [None]
  - MALNUTRITION [None]
  - MULTI-ORGAN DISORDER [None]
  - NAUSEA [None]
  - PAIN [None]
  - PALPITATIONS [None]
  - PANIC REACTION [None]
  - PENILE ULCERATION [None]
  - PHARYNGITIS [None]
  - POLYP [None]
  - PROCTITIS ULCERATIVE [None]
  - PYREXIA [None]
  - RASH [None]
  - RECTAL CRAMPS [None]
  - RECTAL HAEMORRHAGE [None]
  - SIGMOIDITIS [None]
  - SINUS DISORDER [None]
  - SKIN EXFOLIATION [None]
  - STRESS [None]
  - SUPRAVENTRICULAR EXTRASYSTOLES [None]
  - TACHYCARDIA [None]
  - THROMBOPHLEBITIS SUPERFICIAL [None]
  - TINEA PEDIS [None]
  - TREMOR [None]
  - UPPER RESPIRATORY TRACT INFECTION [None]
  - URETHRITIS [None]
  - VENTRICULAR EXTRASYSTOLES [None]
